FAERS Safety Report 5160850-3 (Version None)
Quarter: 2006Q4

REPORT INFORMATION
  Report Type: 
  Country: None (occurrence: None)
  Receive Date: 20061130
  Receipt Date: 20061122
  Transmission Date: 20070319
  Serious: Yes (Hospitalization)
  Sender: FDA-Public Use
  Company Number: US-RB-004375-06

PATIENT
  Sex: Female
  Weight: 72 kg

DRUGS (5)
  1. SUBUTEX [Suspect]
     Indication: DRUG DEPENDENCE
     Route: 060
     Dates: start: 20060701, end: 20061022
  2. SUBUTEX [Suspect]
     Route: 060
     Dates: start: 20061023
  3. LANOXIN [Concomitant]
  4. SYNTHROID [Concomitant]
     Indication: HYPOTHYROIDISM
     Dosage: DOSE IS 100 MCG/DAY
  5. COLCHICINE [Concomitant]
     Indication: CHONDROCALCINOSIS

REACTIONS (2)
  - CHONDROCALCINOSIS PYROPHOSPHATE [None]
  - DIZZINESS [None]
